FAERS Safety Report 9057792 (Version 1)
Quarter: 2013Q1

REPORT INFORMATION
  Report Type: Spontaneous
  Country: US (occurrence: None)
  Receive Date: 20130204
  Receipt Date: 20130204
  Transmission Date: 20140127
  Serious: Yes (Death)
  Sender: FDA-Public Use
  Company Number: None

PATIENT
  Age: 60 Year
  Sex: Male
  Weight: 108.2 kg

DRUGS (1)
  1. REUMOFAN [Suspect]
     Route: 048

REACTIONS (14)
  - Renal failure [None]
  - Acute respiratory distress syndrome [None]
  - Chest pain [None]
  - Diarrhoea [None]
  - Syncope [None]
  - Hypoglycaemia [None]
  - Hepatic necrosis [None]
  - Hepatic failure [None]
  - Lactic acidosis [None]
  - Hypocalcaemia [None]
  - Multi-organ failure [None]
  - Coagulopathy [None]
  - Liver injury [None]
  - Systemic inflammatory response syndrome [None]
